FAERS Safety Report 7680715-2 (Version None)
Quarter: 2011Q3

REPORT INFORMATION
  Report Type: 
  Country: None (occurrence: None)
  Receive Date: 20110812
  Receipt Date: 20110808
  Transmission Date: 20111222
  Serious: Yes (Other)
  Sender: FDA-Public Use
  Company Number: US-PFIZER INC-2011182158

PATIENT
  Age: 7 Year
  Sex: Female

DRUGS (6)
  1. NITRIC OXIDE [Suspect]
     Indication: PULMONARY HYPERTENSION
     Dosage: UNK
     Route: 055
  2. DOXYCYCLINE [Concomitant]
     Dosage: UNK
  3. SILDENAFIL CITRATE [Suspect]
     Dosage: 0.5 MG/KG, 3X/DAY
  4. PEGINTERFERON ALFA-2A [Concomitant]
     Dosage: UNK
  5. SILDENAFIL CITRATE [Suspect]
     Indication: PULMONARY HYPERTENSION
     Dosage: 1 MG/KG, 3X/DAY
  6. ALDACTAZIDE [Concomitant]
     Dosage: UNK

REACTIONS (1)
  - PULMONARY OEDEMA [None]
